FAERS Safety Report 15426907 (Version 4)
Quarter: 2023Q2

REPORT INFORMATION
  Report Type: Spontaneous
  Country: HU (occurrence: HU)
  Receive Date: 20180925
  Receipt Date: 20230526
  Transmission Date: 20230722
  Serious: Yes (Other)
  Sender: FDA-Public Use
  Company Number: HU-NOVPHSZ-PHHY2018HU070510

PATIENT
  Age: 38 Year
  Sex: Female
  Weight: 83 kg

DRUGS (7)
  1. FENTANYL [Suspect]
     Active Substance: FENTANYL
     Indication: General anaesthesia
     Dosage: UNK
     Route: 065
  2. PROPOFOL [Suspect]
     Active Substance: PROPOFOL
     Indication: General anaesthesia
     Dosage: UNK
     Route: 065
  3. DEXAMETHASONE SODIUM PHOSPHATE [Suspect]
     Active Substance: DEXAMETHASONE SODIUM PHOSPHATE
     Indication: Neonatal respiratory distress syndrome prophylaxis
     Dosage: 1 DOSAGE FORM, BID, 4X6 MG, Q12H/12 MG DAILY
     Route: 065
  4. DEXAMETHASONE SODIUM PHOSPHATE [Suspect]
     Active Substance: DEXAMETHASONE SODIUM PHOSPHATE
     Dosage: 6 MG, BID, 4X6 MG, Q12H/12 MILLIGRAM DAILY
     Route: 065
  5. ATROPINE [Suspect]
     Active Substance: ATROPINE
     Indication: General anaesthesia
     Dosage: UNK
     Route: 065
  6. NEOSTIGMINE METHYLSULFATE [Suspect]
     Active Substance: NEOSTIGMINE METHYLSULFATE
     Indication: General anaesthesia
     Dosage: UNK
     Route: 065
  7. ROCURONIUM BROMIDE [Suspect]
     Active Substance: ROCURONIUM BROMIDE
     Indication: General anaesthesia
     Dosage: UNK
     Route: 065

REACTIONS (4)
  - Premature delivery [Recovered/Resolved]
  - Haemodynamic instability [Recovered/Resolved]
  - Haemorrhage [Recovered/Resolved]
  - Maternal exposure during pregnancy [Recovered/Resolved]
